FAERS Safety Report 4980916-8 (Version None)
Quarter: 2006Q2

REPORT INFORMATION
  Report Type: 
  Country: None (occurrence: None)
  Receive Date: 20060424
  Receipt Date: 20060223
  Transmission Date: 20061013
  Serious: Yes (Death, Life-Threatening)
  Sender: FDA-Public Use
  Company Number: JP-MERCK-0602USA05508

PATIENT
  Age: 75 Year
  Sex: Male

DRUGS (11)
  1. STROMECTOL [Suspect]
     Indication: ACARODERMATITIS
     Route: 048
     Dates: start: 20051119, end: 20051119
  2. VALPROATE SODIUM [Concomitant]
     Indication: EPILEPSY
     Route: 048
     Dates: end: 20051118
  3. ENSURE [Concomitant]
     Route: 048
     Dates: start: 20051118
  4. NICORANDIL [Concomitant]
     Indication: ANGINA PECTORIS
     Route: 048
     Dates: end: 20051118
  5. CIMETIDINE [Concomitant]
     Indication: GASTROINTESTINAL DISORDER THERAPY
     Route: 048
     Dates: end: 20051118
  6. MAGNESIUM OXIDE [Concomitant]
     Indication: GASTROINTESTINAL DISORDER THERAPY
     Route: 048
     Dates: end: 20051118
  7. METOPROLOL TARTRATE [Concomitant]
     Route: 048
     Dates: end: 20051118
  8. TORSEMIDE [Concomitant]
     Route: 048
     Dates: end: 20051118
  9. ASPIRIN [Concomitant]
     Route: 048
     Dates: end: 20051118
  10. THEOPHYLLINE [Concomitant]
     Route: 048
     Dates: end: 20051118
  11. TAKASUNON (ERYTHROMYCIN ETHYLSUCCINATE) [Concomitant]
     Route: 048
     Dates: end: 20051118

REACTIONS (4)
  - CONVULSION [None]
  - DIABETIC HYPEROSMOLAR COMA [None]
  - MULTI-ORGAN FAILURE [None]
  - PNEUMONIA [None]
